FAERS Safety Report 25548074 (Version 1)
Quarter: 2025Q3

REPORT INFORMATION
  Report Type: Spontaneous
  Country: EU (occurrence: EU)
  Receive Date: 20250714
  Receipt Date: 20250714
  Transmission Date: 20251020
  Serious: Yes (Hospitalization, Disabling)
  Sender: ACCORD
  Company Number: None

PATIENT
  Age: 70 Year
  Sex: Female
  Weight: 72 kg

DRUGS (11)
  1. OXALIPLATIN [Suspect]
     Active Substance: OXALIPLATIN
     Indication: Pancreatic carcinoma metastatic
     Dates: start: 20250425, end: 20250425
  2. IRINOTECAN [Suspect]
     Active Substance: IRINOTECAN
     Indication: Pancreatic carcinoma metastatic
     Dates: start: 20250409, end: 20250409
  3. FLUOROURACIL [Suspect]
     Active Substance: FLUOROURACIL
     Indication: Pancreatic carcinoma metastatic
     Dates: start: 20250409, end: 20250410
  4. ATROPINE [Concomitant]
     Active Substance: ATROPINE
  5. INNOHEP [Concomitant]
     Active Substance: TINZAPARIN SODIUM
  6. LEUCOVORIN CALCIUM [Concomitant]
     Active Substance: LEUCOVORIN CALCIUM
  7. ONDANSETRON [Concomitant]
     Active Substance: ONDANSETRON
  8. METHYLPREDNISOLONE [Concomitant]
     Active Substance: METHYLPREDNISOLONE
  9. IRINOTECAN [Suspect]
     Active Substance: IRINOTECAN
     Indication: Pancreatic carcinoma metastatic
     Dates: start: 20250425, end: 20250425
  10. FLUOROURACIL [Suspect]
     Active Substance: FLUOROURACIL
     Indication: Pancreatic carcinoma metastatic
     Dates: start: 20250425, end: 20250426
  11. OXALIPLATIN [Suspect]
     Active Substance: OXALIPLATIN
     Indication: Pancreatic carcinoma metastatic
     Dates: start: 20250409, end: 20250409

REACTIONS (3)
  - Vomiting [Recovering/Resolving]
  - Diarrhoea [Recovered/Resolved]
  - Choroidal haematoma [Not Recovered/Not Resolved]

NARRATIVE: CASE EVENT DATE: 20250401
